FAERS Safety Report 8129358-7 (Version None)
Quarter: 2012Q1

REPORT INFORMATION
  Report Type: 
  Country: None (occurrence: None)
  Receive Date: 20120210
  Receipt Date: 20120208
  Transmission Date: 20120608
  Serious: Yes (Hospitalization)
  Sender: FDA-Public Use
  Company Number: GB-MERCK-1101GBR00133

PATIENT
  Age: 70 Year
  Sex: Male

DRUGS (3)
  1. DIURETIC (UNSPECIFIED) [Concomitant]
     Route: 065
  2. JANUVIA [Suspect]
     Route: 048
     Dates: start: 20090601
  3. GLICLAZIDE [Concomitant]
     Route: 065

REACTIONS (1)
  - PANCYTOPENIA [None]
